FAERS Safety Report 7141830-5 (Version None)
Quarter: 2010Q4

REPORT INFORMATION
  Report Type: 
  Country: None (occurrence: None)
  Receive Date: 20101207
  Receipt Date: 20101122
  Transmission Date: 20110411
  Serious: Yes (Other)
  Sender: FDA-Public Use
  Company Number: NZ-ROCHE-745655

PATIENT

DRUGS (1)
  1. ISOTRETINOIN [Suspect]
     Indication: SKIN DISORDER
     Route: 065

REACTIONS (52)
  - ABDOMINAL DISCOMFORT [None]
  - ACANTHOSIS NIGRICANS [None]
  - ALOPECIA [None]
  - CALCINOSIS [None]
  - CARDIOMYOPATHY [None]
  - CHEILITIS [None]
  - CHILLBLAINS [None]
  - CHOLELITHIASIS [None]
  - CYTOMEGALOVIRUS INFECTION [None]
  - DERMATITIS EXFOLIATIVE [None]
  - ECZEMA [None]
  - ENURESIS [None]
  - EPISTAXIS [None]
  - ERYTHEMA [None]
  - ERYTHEMA NODOSUM [None]
  - EYE DISORDER [None]
  - FATIGUE [None]
  - FEELING ABNORMAL [None]
  - FOLLICULITIS [None]
  - FURUNCLE [None]
  - GINGIVAL HYPERPLASIA [None]
  - GRANULOMA [None]
  - HAEMATURIA [None]
  - HEADACHE [None]
  - HERPES SIMPLEX [None]
  - HERPES ZOSTER [None]
  - HORDEOLUM [None]
  - HYPERTHYROIDISM [None]
  - IMPETIGO [None]
  - INFECTIOUS MONONUCLEOSIS [None]
  - INFLAMMATORY BOWEL DISEASE [None]
  - INSOMNIA [None]
  - LIPIDS ABNORMAL [None]
  - LIVER FUNCTION TEST ABNORMAL [None]
  - MOOD ALTERED [None]
  - MOUTH ULCERATION [None]
  - MYALGIA [None]
  - ORAL CANDIDIASIS [None]
  - PHOTOSENSITIVITY REACTION [None]
  - PLATELET COUNT DECREASED [None]
  - POLYCYTHAEMIA [None]
  - POLYDIPSIA [None]
  - PSORIASIS [None]
  - PTERYGIUM [None]
  - SKIN FRAGILITY [None]
  - STAPHYLOCOCCAL INFECTION [None]
  - SUICIDAL IDEATION [None]
  - SUICIDE ATTEMPT [None]
  - SYNCOPE [None]
  - THERAPEUTIC RESPONSE DELAYED [None]
  - TONSILLITIS [None]
  - VIRAL INFECTION [None]
